FAERS Safety Report 25757784 (Version 9)
Quarter: 2025Q4

REPORT INFORMATION
  Report Type: Report from Study
  Country: CA (occurrence: CA)
  Receive Date: 20250903
  Receipt Date: 20251223
  Transmission Date: 20260117
  Serious: Yes (Hospitalization, Other)
  Sender: PFIZER
  Company Number: CA-PFIZER INC-202500155729

PATIENT
  Age: 58 Year
  Sex: Male
  Weight: 59 kg

DRUGS (6)
  1. IXIFI [Suspect]
     Active Substance: INFLIXIMAB-QBTX
     Indication: Crohn^s disease
     Dosage: 5 MG/KG, WKS 0,2,6 THEN EVERY 8 WKS
     Route: 042
     Dates: start: 20250705
  2. IXIFI [Suspect]
     Active Substance: INFLIXIMAB-QBTX
     Dosage: 295 MG, 3 WEEKS AND 6 DAYS (5MG/KG, WKS 0,2,6 THEN Q 8 WKS)
     Route: 042
     Dates: start: 20250801
  3. IXIFI [Suspect]
     Active Substance: INFLIXIMAB-QBTX
     Dosage: 5 MG/KG
     Route: 042
     Dates: start: 202508
  4. IXIFI [Suspect]
     Active Substance: INFLIXIMAB-QBTX
     Dosage: 560 MG, 10 WEEKS 5 DAYS (10 MG/KG, EVERY 4 WEEKS)
     Route: 042
     Dates: start: 20251015, end: 20251015
  5. IXIFI [Suspect]
     Active Substance: INFLIXIMAB-QBTX
     Dosage: 560 MG, AFTER 5WEEKS AND 5 DAYS (10 MG/KG, EVERY 4 WEEKS)
     Route: 042
     Dates: start: 20251124
  6. PREDNISONE [Concomitant]
     Active Substance: PREDNISONE
     Dosage: UNK TAPERING

REACTIONS (6)
  - Abdominal adhesions [Unknown]
  - Intestinal obstruction [Recovered/Resolved]
  - Uveitis [Unknown]
  - Condition aggravated [Recovering/Resolving]
  - Influenza [Recovering/Resolving]
  - Off label use [Unknown]

NARRATIVE: CASE EVENT DATE: 20250101
